FAERS Safety Report 9240254 (Version 2)
Quarter: 2013Q2

REPORT INFORMATION
  Report Type: Spontaneous
  Country: GB (occurrence: None)
  Receive Date: 20130417
  Receipt Date: 20130426
  Transmission Date: 20140414
  Serious: Yes (Other)
  Sender: FDA-Public Use
  Company Number: AUR-APL-2013-03015

PATIENT
  Age: 60 Year
  Sex: Male

DRUGS (2)
  1. PAROXETINE (PAROXETINE) [Suspect]
     Indication: PRODUCT USED FOR UNKNOWN INDICATION
     Dosage: 50MG (50MG, 1 IN 1D) UNKNOWN
  2. CLOZARIL (CLOZAPINE) [Suspect]
     Indication: SCHIZOPHRENIA
     Dosage: 450 MG (450MG, 1 IN 1 D) ORAL
     Route: 048
     Dates: start: 20010701, end: 201211

REACTIONS (5)
  - Antipsychotic drug level increased [None]
  - Sedation [None]
  - Gamma-glutamyltransferase increased [None]
  - Drug interaction [None]
  - Drug intolerance [None]
